FAERS Safety Report 14203139 (Version 4)
Quarter: 2018Q2

REPORT INFORMATION
  Report Type: Spontaneous
  Country: US (occurrence: US)
  Receive Date: 20171120
  Receipt Date: 20180612
  Transmission Date: 20180711
  Serious: No
  Sender: FDA-Public Use
  Company Number: US-BRISTOL-MYERS SQUIBB COMPANY-BMS-2017-104470

PATIENT
  Sex: Female

DRUGS (2)
  1. OPDIVO [Suspect]
     Active Substance: NIVOLUMAB
     Indication: LUNG NEOPLASM MALIGNANT
     Dosage: UNK
     Route: 042
     Dates: start: 20171109
  2. BENADRYL [Concomitant]
     Active Substance: DIPHENHYDRAMINE HYDROCHLORIDE
     Indication: PRODUCT USED FOR UNKNOWN INDICATION
     Dosage: UNK
     Route: 065

REACTIONS (11)
  - Cough [Unknown]
  - Influenza [Unknown]
  - Fatigue [Unknown]
  - Weight decreased [Unknown]
  - Urticaria [Unknown]
  - Rash [Unknown]
  - Faeces discoloured [Unknown]
  - Decreased appetite [Unknown]
  - Gait disturbance [Unknown]
  - Arthralgia [Unknown]
  - Malaise [Unknown]
